FAERS Safety Report 23190725 (Version 1)
Quarter: 2023Q4

REPORT INFORMATION
  Report Type: Spontaneous
  Country: GB (occurrence: GB)
  Receive Date: 20231116
  Receipt Date: 20231116
  Transmission Date: 20240109
  Serious: Yes (Other)
  Sender: FDA-Public Use
  Company Number: None

PATIENT

DRUGS (2)
  1. ATORVASTATIN [Suspect]
     Active Substance: ATORVASTATIN
     Indication: Blood cholesterol
     Dosage: 10 MG AT INTERVAL
     Route: 065
  2. AMITRIPTYLINE [Concomitant]
     Active Substance: AMITRIPTYLINE
     Indication: Migraine
     Route: 065

REACTIONS (3)
  - Headache [Not Recovered/Not Resolved]
  - Myalgia [Not Recovered/Not Resolved]
  - Insomnia [Not Recovered/Not Resolved]
